FAERS Safety Report 6503689-6 (Version None)
Quarter: 2009Q4

REPORT INFORMATION
  Report Type: 
  Country: None (occurrence: None)
  Receive Date: 20091217
  Receipt Date: 20091207
  Transmission Date: 20100525
  Serious: Yes (Other)
  Sender: FDA-Public Use
  Company Number: PHHY2009BR54240

PATIENT
  Age: 81 Year
  Sex: Female
  Weight: 62 kg

DRUGS (2)
  1. FORASEQ [Suspect]
     Indication: ASTHMA
     Dosage: INHALATION OF 1 CAPSULE OF EACH SUBSTANCE, TWICE A DAY
  2. FORASEQ [Suspect]
     Indication: RESPIRATORY DISORDER

REACTIONS (1)
  - MEDICAL DEVICE COMPLICATION [None]
